FAERS Safety Report 6313788-X (Version None)
Quarter: 2009Q3

REPORT INFORMATION
  Report Type: 
  Country: None (occurrence: None)
  Receive Date: 20090818
  Receipt Date: 20090206
  Transmission Date: 20100115
  Serious: No
  Sender: FDA-Public Use
  Company Number: US-BRISTOL-MYERS SQUIBB COMPANY-14497739

PATIENT
  Sex: Male

DRUGS (2)
  1. REYATAZ [Suspect]
  2. CRESTOR [Suspect]

REACTIONS (1)
  - MYALGIA [None]
